FAERS Safety Report 11319894 (Version 2)
Quarter: 2015Q3

REPORT INFORMATION
  Report Type: Report from Study
  Country: BR (occurrence: BR)
  Receive Date: 20150729
  Receipt Date: 20150812
  Transmission Date: 20151125
  Serious: Yes (Hospitalization)
  Sender: FDA-Public Use
  Company Number: BR-BIOGENIDEC-2015BI105040

PATIENT
  Age: 51 Year
  Sex: Female

DRUGS (3)
  1. DEPAKOTE ER [Concomitant]
     Active Substance: DIVALPROEX SODIUM
  2. TYSABRI [Suspect]
     Active Substance: NATALIZUMAB
     Indication: MULTIPLE SCLEROSIS
     Route: 042
     Dates: start: 20130410
  3. RIVOTRIL [Concomitant]
     Active Substance: CLONAZEPAM

REACTIONS (11)
  - Paraesthesia [Recovered/Resolved]
  - Pain in extremity [Not Recovered/Not Resolved]
  - Depression [Not Recovered/Not Resolved]
  - Central nervous system lesion [Unknown]
  - Dysstasia [Not Recovered/Not Resolved]
  - Loss of consciousness [Unknown]
  - Hypothyroidism [Not Recovered/Not Resolved]
  - Musculoskeletal stiffness [Unknown]
  - Fall [Recovered/Resolved]
  - Weight decreased [Not Recovered/Not Resolved]
  - Decreased appetite [Not Recovered/Not Resolved]

NARRATIVE: CASE EVENT DATE: 2013
